FAERS Safety Report 18540053 (Version 1)
Quarter: 2020Q4

REPORT INFORMATION
  Report Type: Spontaneous
  Country: CY (occurrence: CY)
  Receive Date: 20201124
  Receipt Date: 20201124
  Transmission Date: 20210114
  Serious: Yes (Other)
  Sender: FDA-Public Use
  Company Number: CY-AMGEN-CYPNI2020187370

PATIENT
  Sex: Female
  Weight: 73 kg

DRUGS (16)
  1. PROMETHAZINE [Concomitant]
     Active Substance: PROMETHAZINE HYDROCHLORIDE
     Dosage: ONGOING = CHECKED
     Dates: start: 20181210
  2. THYROXIN [Concomitant]
     Active Substance: LEVOTHYROXINE
     Dosage: ONGOING = CHECKED
  3. TRASTUZUMAB. [Suspect]
     Active Substance: TRASTUZUMAB
     Indication: HER2 POSITIVE BREAST CANCER
     Dosage: 6 MILLIGRAM/KILOGRAM, Q3WK
     Route: 041
     Dates: start: 20181218
  4. AERIUS (DESLORATADINE) [Concomitant]
     Active Substance: DESLORATADINE
     Indication: PRURITUS
     Dosage: UNK
     Dates: start: 20190215
  5. RANITIDINE. [Concomitant]
     Active Substance: RANITIDINE
     Dosage: UNK
     Dates: start: 20181210
  6. MYCOSTATIN [Concomitant]
     Active Substance: NYSTATIN
     Dosage: UNK
     Dates: start: 20181227
  7. DEXAMETHASONE. [Concomitant]
     Active Substance: DEXAMETHASONE
     Dosage: UNK
     Dates: start: 20181210
  8. PACLITAXEL. [Suspect]
     Active Substance: PACLITAXEL
     Indication: HER2 POSITIVE BREAST CANCER
     Dosage: 80 MILLIGRAM/SQ. METER, QWK
     Route: 042
     Dates: start: 20181218
  9. BEPANTHOL [DEXPANTHENOL] [Concomitant]
     Dosage: UNK
     Dates: start: 20190110
  10. PERTUZUMAB. [Suspect]
     Active Substance: PERTUZUMAB
     Indication: HER2 POSITIVE BREAST CANCER
     Dosage: 420 MILLIGRAM/KILOGRAM, Q3WK
     Route: 042
     Dates: start: 20181217
  11. THYROXIN [Concomitant]
     Active Substance: LEVOTHYROXINE
     Dosage: ONGOING = CHECKED
  12. LOPERAMIDE [Concomitant]
     Active Substance: LOPERAMIDE
     Indication: DIARRHOEA
     Dosage: ONGOING = CHECKED
     Dates: start: 20190411
  13. HYDROCORTISONE. [Concomitant]
     Active Substance: HYDROCORTISONE
     Dosage: UNK
     Dates: start: 20181210
  14. MICARDIS [Concomitant]
     Active Substance: TELMISARTAN
     Dosage: UNK
  15. ZOLEDRONIC ACID. [Concomitant]
     Active Substance: ZOLEDRONIC ACID
     Dosage: UNK
     Dates: start: 20190627
  16. METOCHLOPRAMIDE [Concomitant]
     Active Substance: METOCLOPRAMIDE HYDROCHLORIDE
     Dosage: UNK
     Dates: start: 20190228

REACTIONS (4)
  - COVID-19 [Recovered/Resolved]
  - Diarrhoea [Recovered/Resolved]
  - Off label use [Unknown]
  - Onychomadesis [Recovered/Resolved]

NARRATIVE: CASE EVENT DATE: 201812
